FAERS Safety Report 12208406 (Version 1)
Quarter: 2016Q1

REPORT INFORMATION
  Report Type: Report from Study
  Country: DE (occurrence: DE)
  Receive Date: 20160324
  Receipt Date: 20160324
  Transmission Date: 20160526
  Serious: Yes (Hospitalization, Other)
  Sender: FDA-Public Use
  Company Number: DE-BRISTOL-MYERS SQUIBB COMPANY-BMS-2016-008962

PATIENT
  Age: 45 Year
  Sex: Male
  Weight: 89 kg

DRUGS (10)
  1. NIVOLUMAB [Suspect]
     Active Substance: NIVOLUMAB
     Indication: MALIGNANT MELANOMA
     Dosage: 267 MG, RECENT DOSE: WITH 258MG ON 02DEC2015
     Route: 065
     Dates: start: 20150715
  2. NIVOLUMAB [Suspect]
     Active Substance: NIVOLUMAB
     Dosage: 267 MG, UNK
     Route: 065
     Dates: start: 20150826, end: 20150826
  3. NIVOLUMAB [Suspect]
     Active Substance: NIVOLUMAB
     Dosage: 262 MG, UNK
     Route: 065
     Dates: start: 20151021, end: 20151021
  4. NIVOLUMAB [Suspect]
     Active Substance: NIVOLUMAB
     Dosage: 258 MG, UNK
     Route: 065
     Dates: start: 20151202, end: 20151202
  5. NIVOLUMAB [Suspect]
     Active Substance: NIVOLUMAB
     Dosage: 268 MG, UNK
     Route: 065
     Dates: start: 20150909, end: 20150909
  6. NIVOLUMAB [Suspect]
     Active Substance: NIVOLUMAB
     Dosage: 268.8 MG, UNK
     Route: 065
     Dates: start: 20150729, end: 20150729
  7. NIVOLUMAB [Suspect]
     Active Substance: NIVOLUMAB
     Dosage: 265 MG, UNK
     Route: 065
     Dates: start: 20150923, end: 20150923
  8. NIVOLUMAB [Suspect]
     Active Substance: NIVOLUMAB
     Dosage: 262.5 MG, UNK
     Route: 065
     Dates: start: 20151007, end: 20151007
  9. NIVOLUMAB [Suspect]
     Active Substance: NIVOLUMAB
     Dosage: 270 MG, UNK
     Route: 065
     Dates: start: 20150812, end: 20150812
  10. NIVOLUMAB [Suspect]
     Active Substance: NIVOLUMAB
     Dosage: 259 MG, UNK
     Route: 065
     Dates: start: 20151118, end: 20151118

REACTIONS (2)
  - Metastases to central nervous system [Not Recovered/Not Resolved]
  - Radiation necrosis [Recovered/Resolved with Sequelae]

NARRATIVE: CASE EVENT DATE: 20160113
